FAERS Safety Report 4264428-5 (Version None)
Quarter: 2004Q1

REPORT INFORMATION
  Report Type: 
  Country: None (occurrence: None)
  Receive Date: 20040106
  Receipt Date: 20030923
  Transmission Date: 20041129
  Serious: Yes (Other)
  Sender: FDA-Public Use
  Company Number: AU-GLAXOSMITHKLINE-B0309922A

PATIENT
  Age: 38 Year
  Sex: Female

DRUGS (3)
  1. ZANTAC [Suspect]
     Route: 065
  2. ENDEP [Concomitant]
  3. VIOXX [Concomitant]
     Route: 065

REACTIONS (5)
  - AGITATION [None]
  - FLUID RETENTION [None]
  - IRRITABILITY [None]
  - OEDEMA PERIPHERAL [None]
  - OROPHARYNGEAL SWELLING [None]
